FAERS Safety Report 24440759 (Version 2)
Quarter: 2024Q4

REPORT INFORMATION
  Report Type: Report from Study
  Country: US (occurrence: US)
  Receive Date: 20241016
  Receipt Date: 20241017
  Transmission Date: 20250115
  Serious: No
  Sender: ROCHE
  Company Number: US-ROCHE-3162637

PATIENT
  Age: 38 Year
  Sex: Male
  Weight: 85.0 kg

DRUGS (2)
  1. HEMLIBRA [Suspect]
     Active Substance: EMICIZUMAB-KXWH
     Indication: Factor VIII deficiency
     Dosage: YES
     Route: 058
  2. HEMLIBRA [Suspect]
     Active Substance: EMICIZUMAB-KXWH
     Dosage: INJECT 135MG SUBCUTANEOUSLY EVERY WEEK ( USE 0.7ML FROM 105MG VIAL AND 1ML FROM 30MG VIAL) DOSE: 30
     Route: 058

REACTIONS (3)
  - Haemorrhage [Recovered/Resolved]
  - Expired product administered [Unknown]
  - Hypertension [Unknown]
